FAERS Safety Report 15201115 (Version 5)
Quarter: 2018Q3

REPORT INFORMATION
  Report Type: Spontaneous
  Country: US (occurrence: US)
  Receive Date: 20180726
  Receipt Date: 20180822
  Transmission Date: 20181010
  Serious: No
  Sender: FDA-Public Use
  Company Number: US-PFIZER INC-2018297641

PATIENT
  Age: 61 Year
  Sex: Female

DRUGS (1)
  1. LYRICA [Suspect]
     Active Substance: PREGABALIN
     Dosage: UNK
     Dates: end: 20180720

REACTIONS (5)
  - Anxiety [Unknown]
  - Malaise [Unknown]
  - Drug withdrawal syndrome [Unknown]
  - Depression [Unknown]
  - Feeling abnormal [Unknown]
